FAERS Safety Report 7526476-9 (Version None)
Quarter: 2011Q2

REPORT INFORMATION
  Report Type: 
  Country: None (occurrence: None)
  Receive Date: 20110606
  Receipt Date: 20110531
  Transmission Date: 20111010
  Serious: Yes (Death, Other)
  Sender: FDA-Public Use
  Company Number: LB-ASTRAZENECA-2011SE26265

PATIENT
  Age: 89 Year
  Sex: Female
  Weight: 75 kg

DRUGS (4)
  1. MEROPENEM [Suspect]
     Indication: ESCHERICHIA INFECTION
     Route: 042
     Dates: start: 20110210, end: 20110220
  2. RISEK [Concomitant]
     Indication: PROPHYLAXIS
     Route: 048
     Dates: start: 20110206
  3. BISOPROLOL FUMARATE [Concomitant]
     Dosage: 1.25 DAILY
     Route: 048
     Dates: start: 20110206, end: 20110212
  4. TRITACE [Concomitant]
     Indication: CARDIAC FAILURE
     Dosage: 1.25 DAILY
     Route: 048
     Dates: start: 20110206, end: 20110212

REACTIONS (2)
  - PANCYTOPENIA [None]
  - SEPTIC SHOCK [None]
